FAERS Safety Report 12888527 (Version 4)
Quarter: 2016Q4

REPORT INFORMATION
  Report Type: Spontaneous
  Country: US (occurrence: US)
  Receive Date: 20161027
  Receipt Date: 20161221
  Transmission Date: 20170207
  Serious: No
  Sender: FDA-Public Use
  Company Number: US-PFIZER INC-2016498234

PATIENT
  Age: 73 Year
  Sex: Male
  Weight: 101 kg

DRUGS (2)
  1. ZOLOFT [Suspect]
     Active Substance: SERTRALINE HYDROCHLORIDE
     Indication: ANXIETY
  2. ZOLOFT [Suspect]
     Active Substance: SERTRALINE HYDROCHLORIDE
     Indication: IRRITABILITY
     Dosage: 100 MG, 1X/DAY
     Dates: start: 2000

REACTIONS (5)
  - Tension [Unknown]
  - Drug ineffective [Not Recovered/Not Resolved]
  - Irritability [Unknown]
  - Hallucination, auditory [Not Recovered/Not Resolved]
  - Judgement impaired [Unknown]

NARRATIVE: CASE EVENT DATE: 201605
